FAERS Safety Report 16231509 (Version 1)
Quarter: 2019Q2

REPORT INFORMATION
  Report Type: Report from Study
  Country: ES (occurrence: ES)
  Receive Date: 20190424
  Receipt Date: 20190424
  Transmission Date: 20190711
  Serious: Yes (Hospitalization)
  Sender: FDA-Public Use
  Company Number: ES-TEVA-2019-ES-1041469

PATIENT
  Age: 41 Year
  Sex: Male

DRUGS (2)
  1. NAPROXENO (2002A) [Suspect]
     Active Substance: NAPROXEN
     Indication: BACK PAIN
     Dosage: 500 MILLIGRAM DAILY;
     Route: 048
     Dates: start: 20181221, end: 20190106
  2. CICLOBENZAPRINA HIDROCLORURO (830CH) [Concomitant]
     Indication: BACK PAIN
     Dosage: 10 MILLIGRAM DAILY;
     Route: 048
     Dates: start: 20181221, end: 20190106

REACTIONS (1)
  - Duodenal ulcer perforation [Recovered/Resolved]

NARRATIVE: CASE EVENT DATE: 20190105
